FAERS Safety Report 8175552-9 (Version None)
Quarter: 2012Q1

REPORT INFORMATION
  Report Type: 
  Country: None (occurrence: None)
  Receive Date: 20120301
  Receipt Date: 20120218
  Transmission Date: 20120608
  Serious: Yes (Death, Hospitalization)
  Sender: FDA-Public Use
  Company Number: US-PAR PHARMACEUTICAL, INC-2012SCPR004227

PATIENT

DRUGS (2)
  1. HYDROXYUREA [Suspect]
     Indication: SICKLE CELL ANAEMIA
     Dosage: 9.0 MG/KG, DAILY
     Route: 065
  2. HYDROXYUREA [Suspect]
     Dosage: 18 MG/KG, DAILY
     Route: 065

REACTIONS (4)
  - ERYTHROLEUKAEMIA [None]
  - ACUTE CHEST SYNDROME [None]
  - DEATH [None]
  - NEUTROPENIA [None]
